FAERS Safety Report 7296520-5 (Version None)
Quarter: 2011Q1

REPORT INFORMATION
  Report Type: 
  Country: None (occurrence: None)
  Receive Date: 20110216
  Receipt Date: 20110203
  Transmission Date: 20110831
  Serious: Yes (Hospitalization, Other)
  Sender: FDA-Public Use
  Company Number: PHHY2010JP63709

PATIENT
  Sex: Female
  Weight: 40 kg

DRUGS (7)
  1. LANIRAPID [Suspect]
     Dosage: 0.2 MG
     Route: 048
     Dates: start: 20100603, end: 20100917
  2. THYRADIN [Concomitant]
     Indication: THYROIDITIS CHRONIC
     Dosage: 25 MG
     Route: 048
     Dates: start: 20100603, end: 20100917
  3. HOKUNALIN TAPE [Concomitant]
  4. ALVESCO [Concomitant]
     Dosage: 200 UG
     Dates: start: 20100925
  5. CONIEL [Concomitant]
     Dosage: 2 T DAILY
  6. EXFORGE [Suspect]
     Indication: HYPERTENSION
     Dosage: 1 DF
     Route: 048
     Dates: start: 20100603, end: 20100917
  7. KIPRES [Concomitant]
     Indication: ASTHMA
     Dosage: 10 MG
     Route: 048
     Dates: start: 20100603, end: 20100917

REACTIONS (5)
  - FEELING ABNORMAL [None]
  - SYNCOPE [None]
  - SICK SINUS SYNDROME [None]
  - DYSPNOEA [None]
  - ARRHYTHMIA [None]
